FAERS Safety Report 18381312 (Version 1)
Quarter: 2020Q4

REPORT INFORMATION
  Report Type: Spontaneous
  Country: JP (occurrence: JP)
  Receive Date: 20201014
  Receipt Date: 20201014
  Transmission Date: 20210114
  Serious: Yes (Hospitalization)
  Sender: FDA-Public Use
  Company Number: JP-MYLANLABS-2020M1085885

PATIENT
  Age: 6 Year
  Sex: Female

DRUGS (5)
  1. CICLOSPORIN [Suspect]
     Active Substance: CYCLOSPORINE
     Dosage: 2 MILLIGRAM/KILOGRAM, QD, DOSE TAPERED
     Route: 065
  2. PREDNISOLONE. [Suspect]
     Active Substance: PREDNISOLONE
     Indication: NEPHROTIC SYNDROME
     Dosage: INITIAL DOSE
     Route: 065
  3. PREDNISOLONE. [Suspect]
     Active Substance: PREDNISOLONE
     Dosage: 20 MILLIGRAM, QD
     Route: 065
  4. MIZORIBINE [Suspect]
     Active Substance: MIZORIBINE
     Indication: NEPHROTIC SYNDROME
     Route: 065
  5. CICLOSPORIN [Suspect]
     Active Substance: CYCLOSPORINE
     Indication: NEPHROTIC SYNDROME
     Dosage: 5 MILLIGRAM/KILOGRAM, QD
     Route: 065

REACTIONS (1)
  - Drug ineffective [Unknown]
